FAERS Safety Report 20151754 (Version 1)
Quarter: 2021Q4

REPORT INFORMATION
  Report Type: Spontaneous
  Country: CA (occurrence: CA)
  Receive Date: 20211206
  Receipt Date: 20211206
  Transmission Date: 20220304
  Serious: Yes (Hospitalization, Other)
  Sender: FDA-Public Use
  Company Number: CA-APOTEX-2021AP045864

PATIENT
  Age: 54 Year
  Sex: Female

DRUGS (4)
  1. LITHIUM [Suspect]
     Active Substance: LITHIUM
     Indication: Bipolar I disorder
     Dosage: 900 MILLIGRAM, QD
     Route: 048
  2. RISPERIDONE [Concomitant]
     Active Substance: RISPERIDONE
     Indication: Bipolar I disorder
     Dosage: 3 MILLIGRAM, QD
     Route: 048
  3. BENZTROPINE [Concomitant]
     Active Substance: BENZTROPINE
     Indication: Bipolar I disorder
     Dosage: 1 MILLIGRAM, QD
     Route: 048
  4. LORAZEPAM [Concomitant]
     Active Substance: LORAZEPAM
     Indication: Bipolar I disorder
     Dosage: 0.5 MILLIGRAM, QD
     Route: 048

REACTIONS (4)
  - Acute kidney injury [Recovered/Resolved]
  - Toxicity to various agents [Recovered/Resolved]
  - Nephrogenic diabetes insipidus [Recovered/Resolved]
  - Drug ineffective [Recovered/Resolved]
